APPROVED DRUG PRODUCT: XIPERE
Active Ingredient: TRIAMCINOLONE ACETONIDE
Strength: 40MG/ML
Dosage Form/Route: SUSPENSION;INJECTION
Application: N211950 | Product #001
Applicant: BAUSCH AND LOMB INC
Approved: Oct 22, 2021 | RLD: Yes | RS: Yes | Type: RX

PATENTS:
Patent 12419833 | Expires: Apr 16, 2040
Patent 8636713 | Expires: May 2, 2027
Patent 9636332 | Expires: Nov 8, 2033
Patent 9937075 | Expires: May 2, 2034